FAERS Safety Report 14360599 (Version 1)
Quarter: 2018Q1

REPORT INFORMATION
  Report Type: Spontaneous
  Country: US (occurrence: US)
  Receive Date: 20180106
  Receipt Date: 20180106
  Transmission Date: 20180509
  Serious: Yes (Other)
  Sender: FDA-Public Use
  Company Number: US-GLENMARK PHARMACEUTICALS-2017GMK030387

PATIENT
  Age: 53 Year
  Sex: Male

DRUGS (7)
  1. FLEXERIL [Suspect]
     Active Substance: CYCLOBENZAPRINE HYDROCHLORIDE
     Indication: DIABETIC AMYOTROPHY
     Dosage: UNK, PATCH
     Route: 065
  2. LIDOCAINE. [Suspect]
     Active Substance: LIDOCAINE
     Dosage: UNK (IV LIDOCAINE INFUSION)
     Route: 042
  3. LIDOCAINE. [Suspect]
     Active Substance: LIDOCAINE
     Indication: DIABETIC AMYOTROPHY
     Dosage: UNK, PATCH
     Route: 065
  4. VENLAFAXINE [Suspect]
     Active Substance: VENLAFAXINE HYDROCHLORIDE
     Indication: DIABETIC AMYOTROPHY
     Dosage: UNK
     Route: 065
  5. TOPIRAMATE. [Suspect]
     Active Substance: TOPIRAMATE
     Indication: DIABETIC AMYOTROPHY
     Dosage: UNK
     Route: 065
  6. GABAPENTIN. [Suspect]
     Active Substance: GABAPENTIN
     Indication: DIABETIC AMYOTROPHY
     Dosage: UNK, PATCH
     Route: 065
  7. TRAMADOL. [Suspect]
     Active Substance: TRAMADOL
     Indication: DIABETIC AMYOTROPHY
     Dosage: UNK, PATCH
     Route: 065

REACTIONS (2)
  - Drug ineffective for unapproved indication [Unknown]
  - Treatment failure [Unknown]
